FAERS Safety Report 9272744 (Version 1)
Quarter: 2013Q2

REPORT INFORMATION
  Report Type: Spontaneous
  Country: US (occurrence: US)
  Receive Date: 20130506
  Receipt Date: 20130506
  Transmission Date: 20140414
  Serious: No
  Sender: FDA-Public Use
  Company Number: US-ASTRAZENECA-2012SE56496

PATIENT
  Sex: Female

DRUGS (1)
  1. PRILOSEC OTC [Suspect]
     Indication: ERUCTATION
     Route: 048

REACTIONS (4)
  - Insomnia [Unknown]
  - Off label use [None]
  - Intentional drug misuse [None]
  - Drug ineffective for unapproved indication [None]
